FAERS Safety Report 21496372 (Version 1)
Quarter: 2022Q4

REPORT INFORMATION
  Report Type: Spontaneous
  Country: US (occurrence: US)
  Receive Date: 20221022
  Receipt Date: 20221022
  Transmission Date: 20230113
  Serious: No
  Sender: FDA-Public Use
  Company Number: US-CELLTRION INC.-2022US006726

PATIENT

DRUGS (2)
  1. INFLECTRA [Suspect]
     Active Substance: INFLIXIMAB-DYYB
     Indication: Product used for unknown indication
     Dosage: (600 OR 800 INTRAVENOUSLY EVERY 8 WEEKS); ONLY HAD 2-3 IV^S STARTED IN AUG 2021 OR SEP 2021
     Route: 042
  2. INFLECTRA [Suspect]
     Active Substance: INFLIXIMAB-DYYB
     Dosage: 600 OR 800 EVERY 8 WEEKS
     Route: 042
     Dates: start: 2021

REACTIONS (5)
  - Decreased appetite [Unknown]
  - Symptom recurrence [Unknown]
  - Diarrhoea [Unknown]
  - Therapy non-responder [Unknown]
  - Therapeutic response decreased [Unknown]
